FAERS Safety Report 24908128 (Version 1)
Quarter: 2025Q1

REPORT INFORMATION
  Report Type: Spontaneous
  Country: GB (occurrence: GB)
  Receive Date: 20250131
  Receipt Date: 20250131
  Transmission Date: 20250408
  Serious: Yes (Other)
  Sender: TEVA
  Company Number: GB-MHRA-TPP25417919C17072602YC1737631447514

PATIENT
  Age: 78 Year
  Sex: Male
  Weight: 93 kg

DRUGS (12)
  1. BISOPROLOL [Suspect]
     Active Substance: BISOPROLOL
     Indication: Ill-defined disorder
     Dosage: 1.25MG TABLETS,CUMULATIVE DOSE?10 MG
     Route: 065
     Dates: start: 20250116
  2. ISOPROPYL MYRISTATE\MINERAL OIL [Concomitant]
     Active Substance: ISOPROPYL MYRISTATE\MINERAL OIL
     Indication: Ill-defined disorder
     Route: 065
     Dates: start: 20240530
  3. MOVICOL [Concomitant]
     Active Substance: POLYETHYLENE GLYCOL 3350\POTASSIUM CHLORIDE\SODIUM BICARBONATE\SODIUM CHLORIDE
     Indication: Ill-defined disorder
     Route: 065
     Dates: start: 20240110
  4. HYALURONATE SODIUM [Concomitant]
     Active Substance: HYALURONATE SODIUM
     Indication: Ill-defined disorder
     Route: 065
     Dates: start: 20240530
  5. FUROSEMIDE [Concomitant]
     Active Substance: FUROSEMIDE
     Indication: Ill-defined disorder
     Dosage: 1 TO BE TAKEN TWICE DAILY,CUMULATIVE DOSE?134 DOSAGE FORM
     Route: 065
     Dates: start: 20241118
  6. LEVOTHYROXINE [Concomitant]
     Active Substance: LEVOTHYROXINE
     Indication: Ill-defined disorder
     Dosage: 1 TABLET ONCE A DAY,CUMULATIVE DOSE?239 DOSAGE FORM
     Route: 065
     Dates: start: 20240530
  7. DUTASTERIDE [Concomitant]
     Active Substance: DUTASTERIDE
     Indication: Ill-defined disorder
     Dosage: 1 CAPSULE ONCE A DAY,CUMULATIVE DOSE?239 DOSAGE FORM
     Route: 065
     Dates: start: 20240530
  8. RAMIPRIL [Concomitant]
     Active Substance: RAMIPRIL
     Indication: Ill-defined disorder
     Dosage: TAKE ONE DAILY,CUMULATIVE DOSE?113 DOSAGE FORM
     Route: 065
     Dates: start: 20241003
  9. HYDROXOCOBALAMIN [Concomitant]
     Active Substance: HYDROXOCOBALAMIN
     Indication: Ill-defined disorder
     Route: 065
     Dates: start: 20241217, end: 20241218
  10. APIXABAN [Concomitant]
     Active Substance: APIXABAN
     Indication: Ill-defined disorder
     Dosage: TAKE ONE TWICE DAILY,CUMULATIVE DOSE?226 DOSAGE FORM
     Route: 065
     Dates: start: 20241003
  11. TAMSULOSIN HYDROCHLORIDE [Concomitant]
     Active Substance: TAMSULOSIN HYDROCHLORIDE
     Indication: Ill-defined disorder
     Dosage: TAKE ONE DAILY,CUMULATIVE DOSE?239 DOSAGE FORM
     Route: 065
     Dates: start: 20240530
  12. OMEPRAZOLE [Concomitant]
     Active Substance: OMEPRAZOLE
     Indication: Ill-defined disorder
     Dosage: TAKE ONE DAILY,CUMULATIVE DOSE?102 DOSAGE FORM
     Route: 065
     Dates: start: 20241014

REACTIONS (3)
  - Swelling face [Recovered/Resolved]
  - Dizziness [Recovered/Resolved]
  - Nausea [Recovered/Resolved]

NARRATIVE: CASE EVENT DATE: 20250123
